FAERS Safety Report 5473554-4 (Version None)
Quarter: 2007Q4

REPORT INFORMATION
  Report Type: 
  Country: None (occurrence: None)
  Receive Date: 20071001
  Receipt Date: 20070426
  Transmission Date: 20080405
  Serious: No
  Sender: FDA-Public Use
  Company Number: US-ASTRAZENECA-2007UW08214

PATIENT
  Age: 68 Year
  Sex: Female
  Weight: 86.2 kg

DRUGS (5)
  1. ARIMIDEX [Suspect]
     Route: 048
  2. GLUCOPHAGE [Concomitant]
  3. TOPROL-XL [Concomitant]
  4. LIPITOR [Concomitant]
  5. ASPIRIN [Concomitant]

REACTIONS (1)
  - HAIR DISORDER [None]
